FAERS Safety Report 6470251-3 (Version None)
Quarter: 2009Q4

REPORT INFORMATION
  Report Type: 
  Country: None (occurrence: None)
  Receive Date: 20091203
  Receipt Date: 20091130
  Transmission Date: 20100525
  Serious: Yes (Hospitalization, Other)
  Sender: FDA-Public Use
  Company Number: US-SANOFI-AVENTIS-2009SA005403

PATIENT
  Sex: Male

DRUGS (6)
  1. DOCETAXEL [Suspect]
     Indication: GASTRIC CANCER
     Dates: start: 20091102, end: 20091102
  2. DOCETAXEL [Suspect]
     Dates: start: 20091020, end: 20091020
  3. CISPLATIN [Suspect]
     Indication: GASTRIC CANCER
     Dates: start: 20091020, end: 20091102
  4. FLUOROURACIL [Suspect]
     Indication: GASTRIC CANCER
     Dates: start: 20091020, end: 20091102
  5. LEUCOVORIN CALCIUM [Suspect]
     Indication: GASTRIC CANCER
     Dates: start: 20091020, end: 20091102
  6. LOPRESSOR [Concomitant]
     Indication: ATRIAL FIBRILLATION

REACTIONS (3)
  - ATRIAL TACHYCARDIA [None]
  - DEHYDRATION [None]
  - METABOLIC DISORDER [None]
